FAERS Safety Report 8369606-1 (Version None)
Quarter: 2012Q2

REPORT INFORMATION
  Report Type: 
  Country: None (occurrence: None)
  Receive Date: 20120518
  Receipt Date: 20120517
  Transmission Date: 20120825
  Serious: Yes (Other)
  Sender: FDA-Public Use
  Company Number: PHFR2012IE001237

PATIENT
  Sex: Female

DRUGS (3)
  1. CLOZARIL [Suspect]
     Dosage: 425 MG, DAILY
     Route: 048
     Dates: start: 20070101
  2. CLOZARIL [Suspect]
     Indication: SCHIZOPHRENIA
     Route: 048
     Dates: start: 20061124
  3. CITALOPRAM HYDROBROMIDE [Concomitant]
     Indication: ANXIETY

REACTIONS (2)
  - ANAEMIA [None]
  - UTERINE LEIOMYOMA [None]
